FAERS Safety Report 8208389-2 (Version None)
Quarter: 2012Q1

REPORT INFORMATION
  Report Type: 
  Country: None (occurrence: None)
  Receive Date: 20120314
  Receipt Date: 20120301
  Transmission Date: 20120608
  Serious: Yes (Other)
  Sender: FDA-Public Use
  Company Number: BR-AMGEN-BRASP2012007434

PATIENT
  Age: 70 Year
  Sex: Female
  Weight: 60 kg

DRUGS (11)
  1. ACETAMINOPHEN [Concomitant]
     Dosage: 400 MG, UNK
  2. CARISOPRODOL [Concomitant]
     Dosage: 126 MG, UNK
  3. LOSARTAN POTASSIUM [Concomitant]
     Indication: HYPERTENSION
     Dosage: UNK
  4. PROPAFENONE HCL [Concomitant]
     Dosage: 300 MG, UNK
  5. BROMAZEPAM [Concomitant]
     Indication: RELAXATION THERAPY
     Dosage: A HALF OF TABLET TO SLEEP
  6. ENBREL [Suspect]
     Indication: RHEUMATOID ARTHRITIS
     Dosage: 25 MG, 2X/WEEK
     Route: 058
     Dates: start: 20080302, end: 20111001
  7. ENDOFOLIN [Concomitant]
     Dosage: 5 MG, UNK
  8. SYNTHROID [Concomitant]
     Indication: THYROID DISORDER
     Dosage: 137 MG, UNK
  9. FAMOTIDINE [Concomitant]
     Dosage: 20 MG, UNK
  10. SIMVASTATIN [Concomitant]
     Indication: BLOOD CHOLESTEROL INCREASED
     Dosage: 20 MG, UNK
  11. MELOXICAM [Concomitant]
     Dosage: 15 MG, UNK

REACTIONS (3)
  - LUNG DISORDER [None]
  - PAIN IN EXTREMITY [None]
  - OEDEMA PERIPHERAL [None]
